FAERS Safety Report 23100890 (Version 1)
Quarter: 2023Q4

REPORT INFORMATION
  Report Type: Spontaneous
  Country: US (occurrence: None)
  Receive Date: 20231021
  Receipt Date: 20231021
  Transmission Date: 20240110
  Serious: Yes (Hospitalization)
  Sender: FDA-Public Use
  Company Number: None

PATIENT
  Age: 68 Year
  Sex: Male

DRUGS (1)
  1. HYDROCODONE BITARTRATE AND ACETAMINOPHEN [Suspect]
     Active Substance: ACETAMINOPHEN\HYDROCODONE BITARTRATE
     Dosage: FREQUENCY : AS NEEDED;?
     Route: 048
     Dates: start: 20221223, end: 20221223

REACTIONS (3)
  - Confusional state [None]
  - Delirium [None]
  - Dizziness [None]

NARRATIVE: CASE EVENT DATE: 20230123
